FAERS Safety Report 4882510-6 (Version None)
Quarter: 2005Q4

REPORT INFORMATION
  Report Type: 
  Country: None (occurrence: None)
  Receive Date: 20051201
  Receipt Date: 20050924
  Transmission Date: 20060501
  Serious: No
  Sender: FDA-Public Use
  Company Number: 2005PV002768

PATIENT
  Age: 63 Year
  Sex: Female
  Weight: 96.1626 kg

DRUGS (11)
  1. BYETTA [Suspect]
     Indication: DIABETES MELLITUS NON-INSULIN-DEPENDENT
     Dosage: 5 MCG;BID;SC
     Route: 058
     Dates: start: 20050923
  2. MICARDIS [Concomitant]
  3. ASPIRIN [Concomitant]
  4. METFORMIN HCL [Concomitant]
  5. AVANDIA [Concomitant]
  6. PROMODINE [Concomitant]
  7. MG OXIDE [Concomitant]
  8. CRESTOR [Concomitant]
  9. TRICOR [Concomitant]
  10. TYLENOL W/ CODEINE [Concomitant]
  11. ANTIVERT [Concomitant]

REACTIONS (4)
  - ASTHENIA [None]
  - GENERALISED ERYTHEMA [None]
  - PARAESTHESIA [None]
  - SWELLING FACE [None]
